FAERS Safety Report 10262380 (Version 1)
Quarter: 2014Q2

REPORT INFORMATION
  Report Type: Spontaneous
  Country: US (occurrence: US)
  Receive Date: 20140626
  Receipt Date: 20140626
  Transmission Date: 20141212
  Serious: Yes (Other)
  Sender: FDA-Public Use
  Company Number: US-PFIZER INC-2014172035

PATIENT
  Age: 56 Year
  Sex: Male
  Weight: 124.71 kg

DRUGS (3)
  1. TESTOSTERONE CIPIONATE [Suspect]
     Indication: BLOOD TESTOSTERONE DECREASED
     Dosage: UNK
     Dates: start: 2007
  2. CELEBREX [Concomitant]
     Dosage: UNK
  3. EFFEXOR [Concomitant]
     Dosage: UNK

REACTIONS (3)
  - Weight increased [Not Recovered/Not Resolved]
  - Blood viscosity increased [Not Recovered/Not Resolved]
  - Asthenia [Unknown]
